FAERS Safety Report 12437211 (Version 2)
Quarter: 2016Q2

REPORT INFORMATION
  Report Type: Report from Study
  Country: AR (occurrence: AR)
  Receive Date: 20160606
  Receipt Date: 20160609
  Transmission Date: 20160815
  Serious: Yes (Other)
  Sender: FDA-Public Use
  Company Number: AR-BAYER-2015-486198

PATIENT
  Age: 59 Year
  Sex: Female

DRUGS (6)
  1. BETAFERON [Suspect]
     Active Substance: INTERFERON BETA-1B
     Indication: MULTIPLE SCLEROSIS
     Dosage: 250 ?G/ML, UNK
     Route: 058
     Dates: start: 20110618
  2. TAFIROL [PARACETAMOL] [Concomitant]
  3. BEROCCA [ASCORBIC ACID,BIOTIN,CALCIUM CARBONATE,MAGNESIUM,VITAMIN [Concomitant]
  4. ASPIRINETAS [Suspect]
     Active Substance: ASPIRIN
  5. BETAFERON [Suspect]
     Active Substance: INTERFERON BETA-1B
     Indication: MULTIPLE SCLEROSIS
     Dosage: 0.500 DF, UNK
     Route: 058
     Dates: start: 20110618
  6. RIVOTRIL [Concomitant]
     Active Substance: CLONAZEPAM
     Indication: BLOOD PRESSURE MANAGEMENT

REACTIONS (10)
  - Haemorrhagic disorder [Not Recovered/Not Resolved]
  - Anaemia [Recovered/Resolved]
  - Asthenopia [Not Recovered/Not Resolved]
  - Fatigue [Not Recovered/Not Resolved]
  - Unevaluable event [Not Recovered/Not Resolved]
  - Fatigue [Recovered/Resolved]
  - Hypoaesthesia [Not Recovered/Not Resolved]
  - Aneurysm [None]
  - Anaemia [Not Recovered/Not Resolved]
  - Drug intolerance [Not Recovered/Not Resolved]

NARRATIVE: CASE EVENT DATE: 2014
